FAERS Safety Report 5270717-8 (Version None)
Quarter: 2007Q1

REPORT INFORMATION
  Report Type: 
  Country: None (occurrence: None)
  Receive Date: 20070319
  Receipt Date: 20070319
  Transmission Date: 20070707
  Serious: Yes (Hospitalization)
  Sender: FDA-Public Use
  Company Number: None

PATIENT
  Sex: Male
  Weight: 104.7809 kg

DRUGS (8)
  1. XENICAL [Suspect]
     Indication: HEPATIC STEATOSIS
     Dosage: 120MG  3X DAILY WITH MEALS  PO
     Route: 048
     Dates: start: 20060729
  2. PLACEBO [Suspect]
  3. METOPROLOL SUCCINATE [Concomitant]
  4. LORAZEPAM [Concomitant]
  5. NIFEIPINE [Concomitant]
  6. LISINOPRIL [Concomitant]
  7. SYNTHROID [Concomitant]
  8. LOVASTATIN [Concomitant]

REACTIONS (1)
  - INTRAVENTRICULAR HAEMORRHAGE [None]
